FAERS Safety Report 10206546 (Version 19)
Quarter: 2017Q1

REPORT INFORMATION
  Report Type: Spontaneous
  Country: US (occurrence: US)
  Receive Date: 20140530
  Receipt Date: 20170105
  Transmission Date: 20170428
  Serious: Yes (Hospitalization, Other)
  Sender: FDA-Public Use
  Company Number: US-GLAXOSMITHKLINE-A1032162A

PATIENT
  Age: 48 Year
  Sex: Female

DRUGS (25)
  1. FLOLAN [Suspect]
     Active Substance: EPOPROSTENOL SODIUM
     Dosage: 35.59 NG/KG/MIN (CONCENTRATION 60,000 NG/ML, PUMP RATE 75 ML/DAY, VIAL STRENGTH 1.5 MG), CO
     Dates: start: 20140805
  2. FLOLAN [Suspect]
     Active Substance: EPOPROSTENOL SODIUM
     Dosage: UNK
  3. FLOLAN [Suspect]
     Active Substance: EPOPROSTENOL SODIUM
     Dosage: 35.9 NG/KG/MIN
  4. FLOLAN [Suspect]
     Active Substance: EPOPROSTENOL SODIUM
     Dosage: 34.6 NG/KG/MIN (CONENTRATION, PUMP RATE, VIAL STRENGTH 1.5 MG), CO
     Route: 042
  5. FLOLAN [Suspect]
     Active Substance: EPOPROSTENOL SODIUM
     Dosage: 34.6 NG/KG/MIN
     Dates: start: 20060413
  6. FLOLAN [Suspect]
     Active Substance: EPOPROSTENOL SODIUM
     Dosage: UNK
  7. FLOLAN [Suspect]
     Active Substance: EPOPROSTENOL SODIUM
     Dosage: 35.59 NG/KG/MIN
     Route: 042
  8. FLOLAN [Suspect]
     Active Substance: EPOPROSTENOL SODIUM
     Indication: PULMONARY ARTERIAL HYPERTENSION
     Dosage: UNK
  9. FLOLAN [Suspect]
     Active Substance: EPOPROSTENOL SODIUM
     Indication: PULMONARY ARTERIAL HYPERTENSION
     Dosage: UNK, U
  10. FLOLAN [Suspect]
     Active Substance: EPOPROSTENOL SODIUM
     Dosage: UNK
  11. FLOLAN [Suspect]
     Active Substance: EPOPROSTENOL SODIUM
     Dosage: 35.59 NG/KG/MIN
     Dates: start: 20140805
  12. FLOLAN [Suspect]
     Active Substance: EPOPROSTENOL SODIUM
     Dosage: 35.59 NG/KG/MIN
     Dates: start: 20140805
  13. FLOLAN [Suspect]
     Active Substance: EPOPROSTENOL SODIUM
     Dosage: 34.6 NG/KG/MIN, CO
  14. FLOLAN [Suspect]
     Active Substance: EPOPROSTENOL SODIUM
     Dosage: UNK
  15. NEURONTIN [Suspect]
     Active Substance: GABAPENTIN
     Indication: PRODUCT USED FOR UNKNOWN INDICATION
     Dosage: UNK, U
     Route: 065
  16. ADCIRCA [Suspect]
     Active Substance: TADALAFIL
  17. FLOLAN [Suspect]
     Active Substance: EPOPROSTENOL SODIUM
     Dosage: 35.59 NG/KG/MIN (CONCENTRATION 60,000 NG/ML, PUMP RATE 75 ML/DAY, VIAL STRENGTH 1.5 MG), CO
  18. FLOLAN [Suspect]
     Active Substance: EPOPROSTENOL SODIUM
     Dosage: 35.6 NG/KG/MIN CONTINUOUSLY
  19. FLOLAN [Suspect]
     Active Substance: EPOPROSTENOL SODIUM
     Indication: PULMONARY ARTERIAL HYPERTENSION
     Dosage: 39.27 NG/KG/MIN, CONC: 60,000 NG/ML, VIAL STRENGTH: 1.5 MG33.71 NG/KG/MIN, CONC 60,000 NG/ML, V[...]
     Route: 042
     Dates: start: 20060405
  20. FLOLAN [Suspect]
     Active Substance: EPOPROSTENOL SODIUM
     Dosage: 34.6 NG/KG/MIN (CONENTRATION, PUMP RATE, VIAL STRENGHT 1.5 MG), CO
     Route: 042
  21. FLOLAN [Suspect]
     Active Substance: EPOPROSTENOL SODIUM
     Dosage: 34.6 DF, CO
  22. FLOLAN [Suspect]
     Active Substance: EPOPROSTENOL SODIUM
     Dosage: 34.6 NG/KG/MIN
     Dates: start: 20060413
  23. FLOLAN [Suspect]
     Active Substance: EPOPROSTENOL SODIUM
     Dosage: 34.64 DF, CO
     Route: 042
  24. LETAIRIS [Concomitant]
     Active Substance: AMBRISENTAN
     Route: 048
  25. FLOLAN [Suspect]
     Active Substance: EPOPROSTENOL SODIUM
     Dosage: 35.59 NG/KG/MIN, CO
     Route: 042

REACTIONS (35)
  - Pain in extremity [Not Recovered/Not Resolved]
  - Sensory disturbance [Unknown]
  - Pain in jaw [Not Recovered/Not Resolved]
  - Fluid overload [Unknown]
  - Device infusion issue [Unknown]
  - Vomiting [Unknown]
  - Dizziness [Unknown]
  - Weight fluctuation [Unknown]
  - Pain [Unknown]
  - Lung infection [Unknown]
  - Painful respiration [Unknown]
  - Dyspnoea [Unknown]
  - Infusion site pain [Unknown]
  - Pain [Not Recovered/Not Resolved]
  - Axillary pain [Unknown]
  - Incorrect dose administered [Unknown]
  - Throat tightness [Unknown]
  - Pneumonia [Unknown]
  - Peripheral swelling [Unknown]
  - Depressed mood [Unknown]
  - Headache [Not Recovered/Not Resolved]
  - Diarrhoea [Not Recovered/Not Resolved]
  - Drug ineffective [Unknown]
  - Catheter site infection [Unknown]
  - Central venous catheterisation [Unknown]
  - Myalgia [Unknown]
  - Epistaxis [Unknown]
  - Neuritis [Unknown]
  - Weight decreased [Unknown]
  - Thrombosis [Unknown]
  - Malaise [Unknown]
  - Nausea [Unknown]
  - Choking sensation [Unknown]
  - Dyspnoea exertional [Unknown]
  - Abdominal pain [Unknown]

NARRATIVE: CASE EVENT DATE: 20130701
